FAERS Safety Report 11850043 (Version 1)
Quarter: 2015Q4

REPORT INFORMATION
  Report Type: Spontaneous
  Country: US (occurrence: US)
  Receive Date: 20151218
  Receipt Date: 20151218
  Transmission Date: 20160305
  Serious: No
  Sender: FDA-Public Use
  Company Number: US-JNJFOC-20151121592

PATIENT
  Age: 84 Year
  Sex: Male
  Weight: 90.72 kg

DRUGS (4)
  1. PEPCID AC MAXIMUM STRENGTH [Suspect]
     Active Substance: FAMOTIDINE
     Route: 048
  2. FISH OIL [Concomitant]
     Active Substance: FISH OIL
     Indication: ROUTINE HEALTH MAINTENANCE
     Dosage: YEARS
     Route: 065
  3. FLAXSEED [Concomitant]
     Active Substance: FLAX SEED
     Indication: ROUTINE HEALTH MAINTENANCE
     Dosage: YEARS
     Route: 065
  4. PEPCID AC MAXIMUM STRENGTH [Suspect]
     Active Substance: FAMOTIDINE
     Indication: GASTROOESOPHAGEAL REFLUX DISEASE
     Route: 048
     Dates: start: 20151113

REACTIONS (1)
  - Rash [Not Recovered/Not Resolved]

NARRATIVE: CASE EVENT DATE: 20151119
